FAERS Safety Report 15935635 (Version 1)
Quarter: 2019Q1

REPORT INFORMATION
  Report Type: Spontaneous
  Country: FR (occurrence: FR)
  Receive Date: 20190208
  Receipt Date: 20190208
  Transmission Date: 20190417
  Serious: Yes (Hospitalization)
  Sender: FDA-Public Use
  Company Number: FR-SUN PHARMACEUTICAL INDUSTRIES LTD-2019RR-198615

PATIENT
  Sex: Female
  Weight: 3.3 kg

DRUGS (2)
  1. STILNOX 10 MG, COMPRIME PELLICULE SECABLE [Suspect]
     Active Substance: ZOLPIDEM TARTRATE
     Indication: INSOMNIA
     Dosage: CF COMMENTAIRE ()
     Route: 064
     Dates: start: 201804, end: 20190103
  2. PAROXETINE. [Suspect]
     Active Substance: PAROXETINE
     Indication: DEPRESSION
     Dosage: 30 MILLIGRAM, DAILY
     Route: 064
     Dates: start: 201804, end: 20190104

REACTIONS (3)
  - Somnolence [Recovering/Resolving]
  - Poor sucking reflex [Recovering/Resolving]
  - Hypotonia [Recovering/Resolving]

NARRATIVE: CASE EVENT DATE: 20190104
